FAERS Safety Report 10019072 (Version 1)
Quarter: 2014Q1

REPORT INFORMATION
  Report Type: Spontaneous
  Country: US (occurrence: US)
  Receive Date: 20140318
  Receipt Date: 20140318
  Transmission Date: 20141002
  Serious: No
  Sender: FDA-Public Use
  Company Number: US-BAYER-2014-036335

PATIENT
  Sex: Female

DRUGS (6)
  1. ALEVE GELCAPS [Suspect]
     Indication: ARTHRITIS
     Dosage: 1 DF, BID
     Route: 048
  2. ALEVE GELCAPS [Suspect]
     Indication: SPINAL COLUMN STENOSIS
  3. ALEVE CAPLET [Suspect]
     Indication: ARTHRITIS
     Dosage: 1 DF, BID
     Route: 048
  4. ALEVE CAPLET [Suspect]
     Indication: SPINAL COLUMN STENOSIS
  5. ALEVE LIQUID GELS [Suspect]
     Indication: ARTHRITIS
     Dosage: 1 DF, BID
     Route: 048
  6. ALEVE LIQUID GELS [Suspect]
     Indication: SPINAL COLUMN STENOSIS

REACTIONS (3)
  - Drug ineffective [None]
  - Drug ineffective [None]
  - Incorrect drug administration duration [None]
